FAERS Safety Report 17125917 (Version 3)
Quarter: 2020Q1

REPORT INFORMATION
  Report Type: Spontaneous
  Country: JP (occurrence: JP)
  Receive Date: 20191208
  Receipt Date: 20200101
  Transmission Date: 20200409
  Serious: Yes (Hospitalization, Other)
  Sender: FDA-Public Use
  Company Number: JP-AMGEN-JPNSP2019199777

PATIENT
  Age: 12 Year
  Sex: Female
  Weight: 26 kg

DRUGS (15)
  1. PRALIA [Suspect]
     Active Substance: DENOSUMAB
     Indication: SPINAL COMPRESSION FRACTURE
     Dosage: 60 MILLIGRAM, Q6MO
     Route: 058
     Dates: start: 20171030, end: 20191030
  2. ESTRANA [Concomitant]
     Active Substance: ESTRADIOL
     Dosage: 0.09 MG, QOD
     Dates: start: 20181214
  3. PRALIA [Suspect]
     Active Substance: DENOSUMAB
     Indication: OSTEOPOROSIS
     Dosage: 60 MILLIGRAM, Q6MO
     Route: 058
     Dates: start: 20171125, end: 20190517
  4. ZINC. [Concomitant]
     Active Substance: ZINC
     Indication: HYPOPITUITARISM
     Dosage: UNK
     Route: 065
  5. BORTEZOMIB. [Concomitant]
     Active Substance: BORTEZOMIB
     Dosage: UNK
     Route: 065
  6. ZINC. [Concomitant]
     Active Substance: ZINC
     Dosage: 25 MG, TID
     Route: 048
     Dates: start: 20190910, end: 20191205
  7. ZOLEDRONIC ACID [Concomitant]
     Active Substance: ZOLEDRONIC ACID
     Dosage: 1 MILLIGRAM, QD
     Route: 041
     Dates: start: 20191126
  8. DEXAMETHASONE. [Concomitant]
     Active Substance: DEXAMETHASONE
     Dosage: UNK
     Route: 065
  9. ESTRANA [Concomitant]
     Active Substance: ESTRADIOL
     Indication: HYPOPITUITARISM
     Dosage: UNK
     Route: 065
  10. NORDITROPIN [Concomitant]
     Active Substance: SOMATROPIN
     Indication: HYPOPITUITARISM
     Dosage: 0.8 MILLIGRAM, QD
     Route: 058
     Dates: start: 20190614, end: 20191124
  11. DENOTAS [Concomitant]
     Active Substance: CALCIUM CARBONATE\CHOLECALCIFEROL\MAGNESIUM CARBONATE
     Dosage: UNK
     Route: 048
  12. ASPARA-CA [Concomitant]
     Active Substance: CALCIUM ASPARTATE
     Dosage: UNK
     Route: 065
     Dates: start: 20191129, end: 20191209
  13. PREDONINE [Concomitant]
     Active Substance: PREDNISOLONE
     Dosage: UNK
     Route: 065
  14. THYRADIN [Concomitant]
     Active Substance: LEVOTHYROXINE
     Dosage: UNK
     Route: 065
  15. DAIPHEN [Concomitant]
     Active Substance: SULFAMETHOXAZOLE\TRIMETHOPRIM
     Indication: HYPOPITUITARISM
     Dosage: 1 DF, QOD
     Route: 048
     Dates: start: 2016

REACTIONS (2)
  - Hypercalcaemia [Recovered/Resolved]
  - Renal impairment [Recovered/Resolved]

NARRATIVE: CASE EVENT DATE: 20191118
